FAERS Safety Report 17778218 (Version 1)
Quarter: 2020Q2

REPORT INFORMATION
  Report Type: Spontaneous
  Country: US (occurrence: US)
  Receive Date: 20200513
  Receipt Date: 20200513
  Transmission Date: 20200714
  Serious: Yes (Hospitalization)
  Sender: FDA-Public Use
  Company Number: NVSC2020US127938

PATIENT
  Age: 75 Year
  Sex: Male

DRUGS (1)
  1. PREDNISONE. [Suspect]
     Active Substance: PREDNISONE
     Indication: ORGANISING PNEUMONIA
     Dosage: 20 MG, QD
     Route: 065

REACTIONS (5)
  - Oxygen consumption increased [Unknown]
  - Fatigue [Unknown]
  - Muscular weakness [Unknown]
  - Myalgia [Unknown]
  - Dyspnoea [Not Recovered/Not Resolved]
